FAERS Safety Report 7442831-X (Version None)
Quarter: 2011Q2

REPORT INFORMATION
  Report Type: 
  Country: None (occurrence: None)
  Receive Date: 20110419
  Receipt Date: 20110404
  Transmission Date: 20111010
  Serious: Yes (Other)
  Sender: FDA-Public Use
  Company Number: AE 2011-123

PATIENT
  Age: 41 Year
  Sex: Female

DRUGS (5)
  1. LEVOTHYROXINE SODIUM [Concomitant]
  2. CLOZAPINE [Suspect]
     Indication: SCHIZOAFFECTIVE DISORDER
     Dosage: 650 MG DAILY,PO
     Route: 048
  3. OXCARBAZEPINE [Concomitant]
  4. METFORMIN HCL [Concomitant]
  5. ATORVASTATIN [Concomitant]

REACTIONS (7)
  - ASPARTATE AMINOTRANSFERASE INCREASED [None]
  - THROMBOCYTOSIS [None]
  - RED BLOOD CELL SEDIMENTATION RATE INCREASED [None]
  - ALANINE AMINOTRANSFERASE INCREASED [None]
  - EOSINOPHILIA [None]
  - ALVEOLITIS [None]
  - PULMONARY TOXICITY [None]
